FAERS Safety Report 7758791-8 (Version None)
Quarter: 2011Q3

REPORT INFORMATION
  Report Type: 
  Country: None (occurrence: None)
  Receive Date: 20110919
  Receipt Date: 20110910
  Transmission Date: 20111222
  Serious: No
  Sender: FDA-Public Use
  Company Number: US-BAYER-2011-085657

PATIENT
  Sex: Female

DRUGS (2)
  1. ALEVE (CAPLET) [Suspect]
     Indication: PAIN IN JAW
  2. ALEVE (CAPLET) [Suspect]
     Indication: ORAL PAIN

REACTIONS (1)
  - FLUID RETENTION [None]
